FAERS Safety Report 12182022 (Version 1)
Quarter: 2016Q1

REPORT INFORMATION
  Report Type: Spontaneous
  Country: SE (occurrence: SE)
  Receive Date: 20160315
  Receipt Date: 20160315
  Transmission Date: 20160526
  Serious: Yes (Other)
  Sender: FDA-Public Use
  Company Number: PHHY2016SE030741

PATIENT
  Age: 50 Year
  Sex: Female

DRUGS (1)
  1. COSENTYX [Suspect]
     Active Substance: SECUKINUMAB
     Indication: PSORIASIS
     Dosage: UNK UKN, QMO
     Route: 065

REACTIONS (5)
  - Erythema [Recovering/Resolving]
  - Feeling abnormal [Recovering/Resolving]
  - Skin warm [Recovering/Resolving]
  - Bacterial infection [Unknown]
  - Erysipelas [Recovering/Resolving]
